FAERS Safety Report 17115554 (Version 1)
Quarter: 2019Q4

REPORT INFORMATION
  Report Type: Spontaneous
  Country: US (occurrence: US)
  Receive Date: 20191204
  Receipt Date: 20191204
  Transmission Date: 20200122
  Serious: Yes (Life-Threatening, Hospitalization)
  Sender: FDA-Public Use
  Company Number: None

PATIENT
  Age: 12 Year

DRUGS (9)
  1. CEPACOL [Suspect]
     Active Substance: BENZOCAINE
     Route: 048
     Dates: start: 20191123, end: 20191125
  2. DIAZEPAM. [Concomitant]
     Active Substance: DIAZEPAM
     Dates: start: 20191120, end: 20191126
  3. CLONIDINE. [Concomitant]
     Active Substance: CLONIDINE
     Dates: start: 20191125, end: 20191126
  4. PANTOPRAZOLE [Concomitant]
     Active Substance: PANTOPRAZOLE
     Dates: start: 20191125, end: 20191129
  5. EMLA [Suspect]
     Active Substance: LIDOCAINE\PRILOCAINE
     Route: 061
     Dates: start: 20191126, end: 20191126
  6. ACETAMINOPHEN. [Concomitant]
     Active Substance: ACETAMINOPHEN
     Dates: start: 20191124, end: 20191125
  7. MORPHINE [Concomitant]
     Active Substance: MORPHINE
     Dates: start: 20191120, end: 20191126
  8. CHLORASEPTIC SORE THROAT [Concomitant]
     Active Substance: PHENOL
     Dates: start: 20191125, end: 20191125
  9. PROMETHAZINE [Concomitant]
     Active Substance: PROMETHAZINE HYDROCHLORIDE
     Dates: start: 20191121, end: 20191126

REACTIONS (1)
  - Methaemoglobinaemia [None]

NARRATIVE: CASE EVENT DATE: 20191126
